FAERS Safety Report 5838334-6 (Version None)
Quarter: 2008Q3

REPORT INFORMATION
  Report Type: 
  Country: None (occurrence: None)
  Receive Date: 20080808
  Receipt Date: 20070804
  Transmission Date: 20090109
  Serious: Yes (Disabling)
  Sender: FDA-Public Use
  Company Number: IT-ROCHE-571248

PATIENT
  Sex: Male

DRUGS (2)
  1. PEGASYS [Suspect]
     Route: 065
     Dates: start: 20061103, end: 20070724
  2. RIBAVIRIN [Suspect]
     Route: 065
     Dates: start: 20061103, end: 20070724

REACTIONS (1)
  - ERECTILE DYSFUNCTION [None]
